FAERS Safety Report 16897853 (Version 2)
Quarter: 2019Q4

REPORT INFORMATION
  Report Type: Spontaneous
  Country: US (occurrence: US)
  Receive Date: 20191009
  Receipt Date: 20191016
  Transmission Date: 20200122
  Serious: Yes (Hospitalization, Other)
  Sender: FDA-Public Use
  Company Number: US-SA-2019SA271256

PATIENT
  Age: 51 Year
  Sex: Female

DRUGS (20)
  1. ANTI-THYMOCYTE GLOBULIN (RABBIT) NOS [Suspect]
     Active Substance: LAPINE T-LYMPHOCYTE IMMUNE GLOBULIN
     Indication: IMMUNOSUPPRESSANT DRUG THERAPY
     Dosage: 100 MG (1.5 MG/KG) POST-OPERATIVE DAYS (POD) 0, 1, AND 2 (TOTAL 3 DOSES)
     Route: 042
     Dates: start: 201512
  2. MYCOPHENOLATE MOFETIL. [Suspect]
     Active Substance: MYCOPHENOLATE MOFETIL
     Dosage: 1000 MG, BID
  3. TACROLIMUS. [Suspect]
     Active Substance: TACROLIMUS
     Indication: IMMUNOSUPPRESSANT DRUG THERAPY
     Dosage: 10-12 MG/DL
     Dates: start: 201512, end: 2016
  4. PREDNISONE. [Suspect]
     Active Substance: PREDNISONE
     Indication: IMMUNOSUPPRESSANT DRUG THERAPY
     Dosage: TAPER
     Dates: start: 201512, end: 2016
  5. TACROLIMUS. [Suspect]
     Active Substance: TACROLIMUS
     Dosage: 17 MG, BID
     Dates: start: 2016, end: 2016
  6. VALGANCICLOVIR HYDROCHLORIDE. [Suspect]
     Active Substance: VALGANCICLOVIR HYDROCHLORIDE
     Indication: ANTIVIRAL PROPHYLAXIS
     Dosage: 450 MG EVERY 48-H PROPHYLACTIC DOSE
     Dates: start: 201512, end: 2016
  7. VALGANCICLOVIR HYDROCHLORIDE. [Suspect]
     Active Substance: VALGANCICLOVIR HYDROCHLORIDE
     Dosage: 450 MG, QD (RESUMED AT WEEK 14 AFTER TRANSPLANT )
  8. TACROLIMUS. [Suspect]
     Active Substance: TACROLIMUS
     Dosage: 8-10 MG/DL
  9. PENTAMIDINE [Concomitant]
     Active Substance: PENTAMIDINE
     Indication: ANTIFUNGAL PROPHYLAXIS
     Route: 055
  10. SULFAMETHOXAZOLE/TRIMETHOPRIM [Suspect]
     Active Substance: SULFAMETHOXAZOLE\TRIMETHOPRIM
     Dosage: UNK
  11. TACROLIMUS. [Suspect]
     Active Substance: TACROLIMUS
     Dosage: 13 MG, BID (TAC TROUGH WAS 7.7NG/ML )
     Dates: start: 2016, end: 2016
  12. TACROLIMUS. [Suspect]
     Active Substance: TACROLIMUS
     Dosage: TROUGH LEVEL WAS REDUCED TO 6-7 NG/DL
     Dates: start: 2016
  13. PREDNISONE. [Suspect]
     Active Substance: PREDNISONE
     Dosage: 5 MG, QD C(CONTINUE TO BE TAPERED TO 5 MG DAILY)
     Dates: start: 2016, end: 2016
  14. PREDNISONE. [Suspect]
     Active Substance: PREDNISONE
     Dosage: 15 MG, QD
     Dates: start: 2016
  15. SULFAMETHOXAZOLE/TRIMETHOPRIM [Suspect]
     Active Substance: SULFAMETHOXAZOLE\TRIMETHOPRIM
     Indication: ANTIFUNGAL PROPHYLAXIS
     Dosage: 800/160 MG DAILY
     Dates: start: 201512, end: 2016
  16. TACROLIMUS. [Suspect]
     Active Substance: TACROLIMUS
     Dosage: 1 MG, Q12H
     Dates: start: 201512, end: 2016
  17. METHYLPREDNISOLONE. [Suspect]
     Active Substance: METHYLPREDNISOLONE
     Indication: IMMUNOSUPPRESSANT DRUG THERAPY
     Dosage: 250 MG, POD 0
     Route: 042
     Dates: start: 201512
  18. MYCOPHENOLATE MOFETIL. [Suspect]
     Active Substance: MYCOPHENOLATE MOFETIL
     Indication: IMMUNOSUPPRESSANT DRUG THERAPY
     Dosage: 1 G, Q12H
     Route: 048
     Dates: start: 201512, end: 2016
  19. MYCOPHENOLATE MOFETIL. [Suspect]
     Active Substance: MYCOPHENOLATE MOFETIL
     Dosage: 500 MG, Q12H
     Route: 048
     Dates: start: 2016, end: 2016
  20. CIPROFLOXACIN. [Concomitant]
     Active Substance: CIPROFLOXACIN
     Indication: PROPHYLAXIS URINARY TRACT INFECTION

REACTIONS (5)
  - Bone marrow failure [Recovering/Resolving]
  - Marrow hyperplasia [Unknown]
  - Tremor [Unknown]
  - Neutropenia [Recovered/Resolved]
  - Hyperkalaemia [Unknown]

NARRATIVE: CASE EVENT DATE: 2016
